FAERS Safety Report 4293088-2 (Version None)
Quarter: 2004Q1

REPORT INFORMATION
  Report Type: 
  Country: None (occurrence: None)
  Receive Date: 20040210
  Receipt Date: 20040129
  Transmission Date: 20041129
  Serious: Yes (Hospitalization)
  Sender: FDA-Public Use
  Company Number: E044-316-3287

PATIENT
  Age: 65 Year
  Sex: Female
  Weight: 62 kg

DRUGS (11)
  1. DONEPEZIL HCL [Suspect]
     Indication: DEMENTIA
     Dosage: DOUBLEBLIND, 1 IN 1 D, ORAL
     Route: 048
     Dates: start: 20031017, end: 20031113
  2. DONEPEZIL HCL [Suspect]
     Indication: DEMENTIA
     Dosage: DOUBLEBLIND, 1 IN 1 D, ORAL
     Route: 048
     Dates: start: 20031114
  3. PARACETAMOL (PARACETAMOL) [Concomitant]
  4. CARBIDOPA/LEVODOPA (SINEMET) [Concomitant]
  5. CABERGOLINE [Concomitant]
  6. CITALOPRAM HYDROBROMIDE (CITALOPRAM HYDROBROMIDE) [Concomitant]
  7. MORPHINE SULPHATE (MORPHINE SULFATE) [Concomitant]
  8. CELECOXIB (CELECOXIB) [Concomitant]
  9. DIAZEPAM [Concomitant]
  10. BISACODYL (BISACODYL) [Concomitant]
  11. CALCIUM CARBONATE (CALCIUM CARBONATE) [Concomitant]

REACTIONS (2)
  - DELUSIONAL DISORDER, PERSECUTORY TYPE [None]
  - DEMENTIA [None]
